FAERS Safety Report 24822606 (Version 2)
Quarter: 2025Q1

REPORT INFORMATION
  Report Type: Spontaneous
  Country: US (occurrence: US)
  Receive Date: 20250109
  Receipt Date: 20250218
  Transmission Date: 20250409
  Serious: Yes (Other)
  Sender: AUROBINDO
  Company Number: US-AUROBINDO-AUR-APL-2025-000500

PATIENT
  Age: 8 Week
  Sex: Male
  Weight: 2.8 kg

DRUGS (5)
  1. PYRIMETHAMINE [Suspect]
     Active Substance: PYRIMETHAMINE
     Indication: Congenital toxoplasmosis
     Route: 065
  2. HYDROCORTISONE [Suspect]
     Active Substance: HYDROCORTISONE
     Indication: Hypopituitarism
     Route: 065
  3. LEVOTHYROXINE SODIUM [Suspect]
     Active Substance: LEVOTHYROXINE SODIUM
     Indication: Hypopituitarism
     Route: 065
  4. SULFADIAZINE [Suspect]
     Active Substance: SULFADIAZINE
     Indication: Congenital toxoplasmosis
     Route: 065
  5. LEUCOVORIN [Suspect]
     Active Substance: LEUCOVORIN\LEUCOVORIN CALCIUM
     Indication: Congenital toxoplasmosis
     Route: 065

REACTIONS (4)
  - Neutropenia [Recovered/Resolved]
  - Seizure [Unknown]
  - Epilepsy [Unknown]
  - Dyskinesia [Unknown]
